FAERS Safety Report 7309050-9 (Version None)
Quarter: 2011Q1

REPORT INFORMATION
  Report Type: 
  Country: None (occurrence: None)
  Receive Date: 20110223
  Receipt Date: 20110216
  Transmission Date: 20110831
  Serious: Yes (Hospitalization)
  Sender: FDA-Public Use
  Company Number: FR-PFIZER INC-2011014025

PATIENT
  Age: 37 Year
  Sex: Male
  Weight: 73.5 kg

DRUGS (10)
  1. CALPEROS D3 [Concomitant]
     Indication: HYPOGONADISM
  2. SOMATROPIN [Suspect]
     Indication: GROWTH HORMONE DEFICIENCY
     Dosage: 0.4 MG, 1X/DAY, 7 INJECTIONS PER WEEK
     Dates: start: 20050319
  3. SEREVENT [Concomitant]
     Indication: ASTHMA
     Dosage: 50 UG, 1X/DAY
     Dates: start: 20050307
  4. HYDROCORTISONE [Concomitant]
     Indication: HORMONE LEVEL ABNORMAL
     Dosage: 20 MG, 1X/DAY
     Route: 048
     Dates: start: 20070509
  5. CALPEROS D3 [Concomitant]
     Indication: BLOOD FOLLICLE STIMULATING HORMONE ABNORMAL
     Dosage: 500 MG, 1X/DAY
     Dates: start: 20040815
  6. BRONCHODUAL [Concomitant]
     Indication: ASTHMA
     Dosage: 100 UG, 1X/DAY
     Dates: start: 20050307
  7. OXYGEN [Concomitant]
     Indication: FIBROSIS
     Dosage: 1.5 L, 1X/DAY
     Dates: start: 20031215
  8. ZESTRIL [Concomitant]
     Indication: CARDIOVASCULAR DISORDER
     Dosage: 5 MG, 1X/DAY
     Dates: start: 20050318
  9. PREDNISOLONE [Concomitant]
     Indication: ASTHMA
     Dosage: 15 MG, 1X/DAY
     Dates: start: 20040815
  10. CALPEROS D3 [Concomitant]
     Indication: BLOOD LUTEINISING HORMONE DECREASED

REACTIONS (1)
  - DYSPNOEA [None]
